FAERS Safety Report 6665890-0 (Version None)
Quarter: 2010Q2

REPORT INFORMATION
  Report Type: 
  Country: None (occurrence: None)
  Receive Date: 20100402
  Receipt Date: 20100323
  Transmission Date: 20101027
  Serious: Yes (Death, Hospitalization)
  Sender: FDA-Public Use
  Company Number: NL-ROCHE-693730

PATIENT
  Age: 67 Year
  Sex: Male

DRUGS (4)
  1. AVASTIN [Suspect]
     Indication: RECTAL CANCER METASTATIC
     Route: 042
     Dates: start: 20070101
  2. XELODA [Suspect]
     Indication: RECTAL CANCER METASTATIC
     Route: 048
     Dates: start: 20030801
  3. XELODA [Suspect]
     Route: 048
     Dates: start: 20070101
  4. OXALIPLATIN [Concomitant]
     Dates: start: 20070101

REACTIONS (4)
  - CARDIAC FAILURE [None]
  - FISTULA [None]
  - MALIGNANT NEOPLASM PROGRESSION [None]
  - PELVIC ABSCESS [None]
